FAERS Safety Report 7736837-0 (Version None)
Quarter: 2011Q3

REPORT INFORMATION
  Report Type: 
  Country: None (occurrence: None)
  Receive Date: 20110908
  Receipt Date: 20110908
  Transmission Date: 20111222
  Serious: Yes (Life-Threatening)
  Sender: FDA-Public Use
  Company Number: None

PATIENT
  Age: 78 Year
  Sex: Male
  Weight: 75.296 kg

DRUGS (1)
  1. ZALEPLON [Suspect]
     Indication: INSOMNIA
     Dosage: ONE CAPSULE
     Route: 048
     Dates: start: 20110515, end: 20110831

REACTIONS (7)
  - ASTHENIA [None]
  - DRUG EFFECT DECREASED [None]
  - HYPERHIDROSIS [None]
  - BLOOD PRESSURE DECREASED [None]
  - TREMOR [None]
  - PRODUCT SUBSTITUTION ISSUE [None]
  - HEART RATE INCREASED [None]
